FAERS Safety Report 5255550-5 (Version None)
Quarter: 2007Q1

REPORT INFORMATION
  Report Type: 
  Country: None (occurrence: None)
  Receive Date: 20070305
  Receipt Date: 20070222
  Transmission Date: 20070707
  Serious: Yes (Hospitalization)
  Sender: FDA-Public Use
  Company Number: HQWYE952301JUL05

PATIENT
  Age: 78 Year
  Sex: Male

DRUGS (8)
  1. CORDARONE [Interacting]
     Indication: ATRIAL FIBRILLATION
     Route: 048
     Dates: start: 20050110
  2. CORDARONE [Interacting]
     Indication: ATRIAL FLUTTER
  3. PREVISCAN [Interacting]
     Route: 048
     Dates: start: 20050118, end: 20050125
  4. ACTRAPID HUMAN [Concomitant]
     Indication: DIABETES MELLITUS INSULIN-DEPENDENT
     Dosage: NOT PROVIDED
     Route: 058
     Dates: start: 20000101
  5. ATROVENT [Concomitant]
     Indication: BRONCHITIS CHRONIC
     Dosage: NOT PROVIDED
     Route: 045
  6. FLIXOTIDE [Concomitant]
     Indication: BRONCHITIS CHRONIC
     Dosage: NOT PROVIDED
     Route: 045
  7. AUGMENTIN [Interacting]
     Indication: LUNG DISORDER
     Route: 048
     Dates: start: 20050110, end: 20050120
  8. INNOHEP [Suspect]
     Route: 058
     Dates: start: 20050110

REACTIONS (4)
  - CARDIAC TAMPONADE [None]
  - CARDIOGENIC SHOCK [None]
  - DRUG INTERACTION [None]
  - INTERNATIONAL NORMALISED RATIO INCREASED [None]
